FAERS Safety Report 9234356 (Version 1)
Quarter: 2013Q2

REPORT INFORMATION
  Report Type: Spontaneous
  Country: FR (occurrence: FR)
  Receive Date: 20130416
  Receipt Date: 20130416
  Transmission Date: 20140414
  Serious: Yes (Death, Life-Threatening, Hospitalization, Other)
  Sender: FDA-Public Use
  Company Number: FR-PFIZER INC-2013113971

PATIENT
  Age: 74 Year
  Sex: Male

DRUGS (10)
  1. XANAX [Suspect]
     Dosage: 3 DF, DAILY
     Route: 048
     Dates: end: 20130101
  2. IMOVANE [Suspect]
     Dosage: UNK
     Route: 048
     Dates: end: 20130101
  3. CORDARONE [Concomitant]
     Dosage: 200 MG, 1X/DAY
     Route: 048
  4. HALDOL [Concomitant]
     Dosage: 2 MG/ML, 20 DROPS DAILY
     Route: 048
     Dates: start: 20121217, end: 20121224
  5. ELISOR [Concomitant]
     Dosage: 20 MG, 1X/DAY
     Route: 048
  6. TRIATEC [Concomitant]
     Dosage: 5 MG, 1X/DAY
     Route: 048
  7. KARDEGIC [Concomitant]
     Dosage: 160 MG, 1X/DAY
     Route: 048
  8. PARKINANE [Concomitant]
     Dosage: 5 MG, 1X/DAY
     Route: 048
     Dates: end: 20121216
  9. DEPAMIDE [Concomitant]
     Dosage: 300 MG, 3 DF, DAILY
     Route: 048
  10. LASILIX [Concomitant]
     Dosage: 40 MG, 1X/DAY
     Route: 048

REACTIONS (11)
  - Overdose [Fatal]
  - Shock [Unknown]
  - Respiratory rate decreased [Unknown]
  - Oxygen saturation decreased [Unknown]
  - Renal failure [Unknown]
  - General physical health deterioration [Unknown]
  - Cognitive disorder [Unknown]
  - Dyskinesia [Unknown]
  - Extrapyramidal disorder [Unknown]
  - Psychomotor retardation [Unknown]
  - Sleep apnoea syndrome [Unknown]
